FAERS Safety Report 8136616-9 (Version None)
Quarter: 2012Q1

REPORT INFORMATION
  Report Type: 
  Country: None (occurrence: None)
  Receive Date: 20120214
  Receipt Date: 20120202
  Transmission Date: 20120608
  Serious: Yes (Hospitalization, Other)
  Sender: FDA-Public Use
  Company Number: US-ELI_LILLY_AND_COMPANY-US201108005250

PATIENT
  Sex: Female
  Weight: 48.84 kg

DRUGS (7)
  1. LEVOXYL [Concomitant]
  2. ACTONEL [Concomitant]
     Dosage: 30 MG, QD
     Route: 048
  3. VITAMIN D [Concomitant]
  4. CYMBALTA [Suspect]
     Indication: FIBROMYALGIA
     Dosage: 30 MG, QD
     Route: 048
     Dates: start: 20110630, end: 20110703
  5. ELAVIL [Concomitant]
     Dosage: 50 MG, EACH EVENING
     Route: 048
  6. LORTAB [Concomitant]
  7. HYDROCODONE [Concomitant]

REACTIONS (13)
  - GENERALISED ANXIETY DISORDER [None]
  - MOOD ALTERED [None]
  - DRUG WITHDRAWAL SYNDROME [None]
  - DIZZINESS [None]
  - DYSARTHRIA [None]
  - PANIC ATTACK [None]
  - DYSPNOEA [None]
  - PARAESTHESIA [None]
  - TREMOR [None]
  - DRY MOUTH [None]
  - VISUAL ACUITY REDUCED [None]
  - DIPLOPIA [None]
  - HYPERHIDROSIS [None]
